FAERS Safety Report 9799932 (Version 1)
Quarter: 2014Q1

REPORT INFORMATION
  Report Type: Spontaneous
  Country: US (occurrence: US)
  Receive Date: 20140106
  Receipt Date: 20140106
  Transmission Date: 20141002
  Serious: No
  Sender: FDA-Public Use
  Company Number: US-BAYER-2014-002231

PATIENT
  Sex: Male

DRUGS (1)
  1. ALEVE CAPLET [Suspect]
     Dosage: 2 DF - TAKES 2 IN THE MORNING AND SOMETIMES 2 IN THE EVENING
     Route: 048

REACTIONS (1)
  - Incorrect drug administration duration [None]
